FAERS Safety Report 23278465 (Version 1)
Quarter: 2023Q4

REPORT INFORMATION
  Report Type: Spontaneous
  Country: US (occurrence: None)
  Receive Date: 20231208
  Receipt Date: 20231208
  Transmission Date: 20240109
  Serious: Yes (Hospitalization)
  Sender: FDA-Public Use
  Company Number: None

PATIENT
  Age: 64 Year
  Sex: Male

DRUGS (28)
  1. MYCOPHENOLIC ACID [Suspect]
     Active Substance: MYCOPHENOLIC ACID
     Indication: Lung transplant
     Route: 048
  2. ALBUTEROL [Concomitant]
     Active Substance: ALBUTEROL
  3. BACTRIM [Concomitant]
     Active Substance: SULFAMETHOXAZOLE\TRIMETHOPRIM
  4. ELIQUIS [Concomitant]
     Active Substance: APIXABAN
  5. FENOFIBRATE [Concomitant]
     Active Substance: FENOFIBRATE
  6. FERROUS [Concomitant]
  7. FLUDROCORTISONE [Concomitant]
     Active Substance: FLUDROCORTISONE
  8. FLUTICASONE [Concomitant]
     Active Substance: FLUTICASONE
  9. GABAPENTIN [Concomitant]
     Active Substance: GABAPENTIN
  10. HAVRIX [Concomitant]
     Active Substance: HEPATITIS A VIRUS STRAIN HM175 ANTIGEN (FORMALDEHYDE INACTIVATED)
  11. HEPLISAV- B [Concomitant]
  12. LIDOCAINE [Concomitant]
     Active Substance: LIDOCAINE
  13. MAGNESIUM [Concomitant]
     Active Substance: MAGNESIUM
  14. MAVYRET [Concomitant]
     Active Substance: GLECAPREVIR\PIBRENTASVIR
  15. METOPROLOL TARTRATE [Concomitant]
     Active Substance: METOPROLOL TARTRATE
  16. MONTELUKAST [Concomitant]
     Active Substance: MONTELUKAST SODIUM
  17. VITAMINS [Concomitant]
     Active Substance: VITAMINS
  18. OFEV [Concomitant]
     Active Substance: NINTEDANIB
  19. PANTOPRAZOLE [Concomitant]
     Active Substance: PANTOPRAZOLE
  20. PREDNISONE [Concomitant]
     Active Substance: PREDNISONE
  21. SHINGRIX [Concomitant]
     Active Substance: RECOMBINANT VARICELLA ZOSTER VIRUS (VZV) GLYCOPROTEIN E
  22. TACROLIMUS [Concomitant]
     Active Substance: TACROLIMUS
  23. TOBRAMYCIN [Concomitant]
     Active Substance: TOBRAMYCIN
  24. TRAZODONE [Concomitant]
     Active Substance: TRAZODONE HYDROCHLORIDE
  25. TYLENOL [Concomitant]
     Active Substance: ACETAMINOPHEN
  26. VALGANCICLOV [Concomitant]
  27. VITAMIN D [Concomitant]
     Active Substance: VITAMIN D NOS
  28. VORICONAZOLE [Concomitant]
     Active Substance: VORICONAZOLE

REACTIONS (2)
  - Surgery [None]
  - Therapy interrupted [None]

NARRATIVE: CASE EVENT DATE: 20231126
